FAERS Safety Report 15287316 (Version 1)
Quarter: 2018Q3

REPORT INFORMATION
  Report Type: Spontaneous
  Country: GR (occurrence: GR)
  Receive Date: 20180817
  Receipt Date: 20180817
  Transmission Date: 20181010
  Serious: Yes (Other)
  Sender: FDA-Public Use
  Company Number: GR-AUROBINDO-AUR-APL-2018-041882

PATIENT
  Age: 3 Year
  Sex: Female

DRUGS (2)
  1. AMOXICILLIN+CLAVULANIC ACID [Suspect]
     Active Substance: AMOXICILLIN\CLAVULANIC ACID
     Indication: STAPHYLOCOCCAL SCALDED SKIN SYNDROME
     Dosage: UNK
     Route: 048
  2. CLINDAMYCIN PHOSPHATE. [Suspect]
     Active Substance: CLINDAMYCIN PHOSPHATE
     Indication: STAPHYLOCOCCAL SCALDED SKIN SYNDROME
     Dosage: UNK
     Route: 042

REACTIONS (2)
  - Disease recurrence [Recovered/Resolved]
  - Staphylococcal scalded skin syndrome [Recovered/Resolved]
